FAERS Safety Report 9159908 (Version 1)
Quarter: 2013Q1

REPORT INFORMATION
  Report Type: Spontaneous
  Country: BR (occurrence: BR)
  Receive Date: 20130313
  Receipt Date: 20130313
  Transmission Date: 20140127
  Serious: Yes (Other)
  Sender: FDA-Public Use
  Company Number: PHHY2013BR024212

PATIENT
  Sex: Female

DRUGS (2)
  1. FORASEQ [Suspect]
     Indication: LOWER RESPIRATORY TRACT INFLAMMATION
     Dosage: ONCE A DAY
  2. FORASEQ [Suspect]
     Dosage: UNK UKN, UNK

REACTIONS (5)
  - Cerebral ischaemia [Recovering/Resolving]
  - Cardiac disorder [Recovering/Resolving]
  - Ear pain [Recovering/Resolving]
  - Bronchospasm [Recovering/Resolving]
  - Cough [Recovering/Resolving]
